FAERS Safety Report 6834681-X (Version None)
Quarter: 2010Q3

REPORT INFORMATION
  Report Type: 
  Country: None (occurrence: None)
  Receive Date: 20100712
  Receipt Date: 20070423
  Transmission Date: 20110219
  Serious: No
  Sender: FDA-Public Use
  Company Number: US-PFIZER INC-2007023013

PATIENT
  Age: 58 Year
  Sex: Female
  Weight: 72.57 kg

DRUGS (6)
  1. CHANTIX [Suspect]
     Indication: SMOKING CESSATION THERAPY
     Route: 048
     Dates: start: 20070214
  2. AMBIEN [Concomitant]
  3. XANAX [Concomitant]
  4. ZOLOFT [Concomitant]
  5. MORPHINE [Concomitant]
  6. SOMA [Concomitant]

REACTIONS (2)
  - FATIGUE [None]
  - FEELING ABNORMAL [None]
